FAERS Safety Report 6306776-0 (Version None)
Quarter: 2009Q3

REPORT INFORMATION
  Report Type: 
  Country: None (occurrence: None)
  Receive Date: 20090811
  Receipt Date: 20090811
  Transmission Date: 20100115
  Serious: Yes (Disabling)
  Sender: FDA-Public Use
  Company Number: None

PATIENT
  Age: 49 Year
  Sex: Female
  Weight: 81.6475 kg

DRUGS (1)
  1. ROZEREM [Suspect]
     Indication: INSOMNIA
     Dosage: 8MG DAILY PO
     Route: 048
     Dates: start: 20090802, end: 20090806

REACTIONS (2)
  - CONDITION AGGRAVATED [None]
  - GLAUCOMA [None]
